FAERS Safety Report 21730406 (Version 1)
Quarter: 2022Q4

REPORT INFORMATION
  Report Type: Spontaneous
  Country: US (occurrence: US)
  Receive Date: 20221214
  Receipt Date: 20221214
  Transmission Date: 20230113
  Serious: Yes (Other)
  Sender: FDA-Public Use
  Company Number: US-MLMSERVICE-2022112539435831

PATIENT
  Age: 60 Year
  Sex: Female

DRUGS (1)
  1. FUROSEMIDE [Suspect]
     Active Substance: FUROSEMIDE
     Indication: Product used for unknown indication

REACTIONS (4)
  - Hyperparathyroidism primary [Unknown]
  - Blood creatinine increased [Recovering/Resolving]
  - Unmasking of previously unidentified disease [Unknown]
  - Hypovolaemia [Recovering/Resolving]
